FAERS Safety Report 10308707 (Version 1)
Quarter: 2014Q3

REPORT INFORMATION
  Report Type: Spontaneous
  Country: AU (occurrence: AU)
  Receive Date: 20140716
  Receipt Date: 20140716
  Transmission Date: 20150326
  Serious: Yes (Other)
  Sender: FDA-Public Use
  Company Number: AU-BAYER-2014-104985

PATIENT
  Age: 50 Year
  Sex: Female

DRUGS (3)
  1. OESTROGEN [Concomitant]
     Dosage: ORAL; DOSE NOS
     Route: 048
  2. MIRENA [Suspect]
     Active Substance: LEVONORGESTREL
     Indication: MENORRHAGIA
     Dosage: 20 MCG/24HR, CONT
     Route: 015
  3. OESTROGEN [Concomitant]
     Dosage: TOPICAL VAGINAL
     Route: 067

REACTIONS (2)
  - Vulval cancer stage 0 [None]
  - Granuloma [None]
